FAERS Safety Report 9540613 (Version 8)
Quarter: 2013Q4

REPORT INFORMATION
  Report Type: Report from Study
  Country: PH (occurrence: PH)
  Receive Date: 20130920
  Receipt Date: 20131126
  Transmission Date: 20140711
  Serious: Yes (Disabling)
  Sender: FDA-Public Use
  Company Number: PH-009507513-1309PHL009500

PATIENT
  Age: 43 Year
  Sex: Male
  Weight: 76 kg

DRUGS (10)
  1. RIBAVIRIN [Suspect]
     Indication: CHRONIC HEPATITIS C
     Dosage: 3 CAPSULES
     Route: 048
     Dates: start: 20130702, end: 20130702
  2. RIBAVIRIN [Suspect]
     Dosage: 3 CAPSULES, QAM
     Route: 048
     Dates: start: 20130703, end: 20130729
  3. RIBAVIRIN [Suspect]
     Dosage: 3 CAPSULES, QPM
     Route: 048
     Dates: start: 20130703, end: 20130720
  4. RIBAVIRIN [Suspect]
     Dosage: 3 CAPSULES, QPM
     Route: 048
     Dates: start: 20130722, end: 20130724
  5. RIBAVIRIN [Suspect]
     Dosage: 3 CAPSULES, QPM
     Route: 048
     Dates: start: 20130726, end: 20130728
  6. RIBAVIRIN [Suspect]
     Dosage: 3 CAPSULES
     Route: 048
     Dates: start: 20130807, end: 20130807
  7. PEGINTERFERON ALFA-2A [Suspect]
     Indication: CHRONIC HEPATITIS C
     Dosage: 180 MICROGRAM, QW
     Route: 058
     Dates: start: 20130702, end: 20130723
  8. PEGINTERFERON ALFA-2A [Suspect]
     Dosage: 180 MICROGRAM, ONCE
     Route: 058
     Dates: start: 20130806, end: 20130806
  9. ALVEDON [Concomitant]
     Indication: PYREXIA
     Dosage: STRENGTH: 500 MG, QOD
     Route: 048
     Dates: start: 20130702, end: 20130817
  10. ALVEDON [Concomitant]
     Indication: HEADACHE

REACTIONS (3)
  - Decreased appetite [Recovered/Resolved]
  - Malaise [Recovered/Resolved]
  - Headache [Recovered/Resolved]
